FAERS Safety Report 5116729-6 (Version None)
Quarter: 2006Q3

REPORT INFORMATION
  Report Type: 
  Country: None (occurrence: None)
  Receive Date: 20060925
  Receipt Date: 20060911
  Transmission Date: 20061208
  Serious: Yes (Other)
  Sender: FDA-Public Use
  Company Number: HQWYE74411SEP06

PATIENT
  Age: 32 Year
  Sex: Male

DRUGS (3)
  1. EFFEXOR XR [Suspect]
     Indication: DEPRESSION
     Dosage: 150 MG 1X PER 1 DAY, ORAL
     Route: 048
     Dates: start: 20060725, end: 20060912
  2. NABUMETONE [Concomitant]
  3. HYDROXYZINE HYDROCHLORIDE [Concomitant]

REACTIONS (2)
  - HOMICIDAL IDEATION [None]
  - SELF-INJURIOUS IDEATION [None]
